FAERS Safety Report 13906024 (Version 1)
Quarter: 2017Q3

REPORT INFORMATION
  Report Type: Spontaneous
  Country: US (occurrence: US)
  Receive Date: 20170825
  Receipt Date: 20170825
  Transmission Date: 20171127
  Serious: Yes (Other)
  Sender: FDA-Public Use
  Company Number: US-ELI_LILLY_AND_COMPANY-US201708006283

PATIENT
  Age: 53 Year
  Sex: Female

DRUGS (4)
  1. PROTONIX                           /00661201/ [Concomitant]
     Active Substance: OMEPRAZOLE
  2. GABAPENTIN. [Concomitant]
     Active Substance: GABAPENTIN
  3. CYMBALTA [Suspect]
     Active Substance: DULOXETINE HYDROCHLORIDE
     Indication: PRODUCT USED FOR UNKNOWN INDICATION
     Dosage: UNK UNK, UNKNOWN
     Route: 065
     Dates: start: 2009
  4. METFORMIN [Concomitant]
     Active Substance: METFORMIN HYDROCHLORIDE

REACTIONS (7)
  - Cerebrospinal fluid leakage [Unknown]
  - Speech disorder [Unknown]
  - Pain [Unknown]
  - Bone erosion [Unknown]
  - Brain herniation [Unknown]
  - Drug withdrawal syndrome [Unknown]
  - Amnesia [Unknown]

NARRATIVE: CASE EVENT DATE: 201708
